FAERS Safety Report 9102753 (Version 1)
Quarter: 2013Q1

REPORT INFORMATION
  Report Type: Report from Study
  Country: US (occurrence: US)
  Receive Date: 20130219
  Receipt Date: 20130219
  Transmission Date: 20140127
  Serious: Yes (Hospitalization)
  Sender: FDA-Public Use
  Company Number: US-ABBOTT-13P-163-1047638-00

PATIENT
  Sex: Female

DRUGS (1)
  1. HUMIRA 40MG/0.4ML [Suspect]
     Indication: RHEUMATOID ARTHRITIS
     Route: 058
     Dates: start: 201201

REACTIONS (1)
  - Vertigo [Unknown]
